FAERS Safety Report 5940626-7 (Version None)
Quarter: 2008Q4

REPORT INFORMATION
  Report Type: 
  Country: None (occurrence: None)
  Receive Date: 20081103
  Receipt Date: 20081103
  Transmission Date: 20090506
  Serious: Yes (Other)
  Sender: FDA-Public Use
  Company Number: None

PATIENT
  Age: 60 Year
  Sex: Female
  Weight: 57.1532 kg

DRUGS (1)
  1. DIAMOX [Suspect]
     Dates: start: 20070901

REACTIONS (5)
  - BLOOD GLUCOSE INCREASED [None]
  - GLUCOSE TOLERANCE IMPAIRED [None]
  - INCREASED TENDENCY TO BRUISE [None]
  - PARAESTHESIA [None]
  - PHOTOPSIA [None]
